FAERS Safety Report 8915184 (Version 3)
Quarter: 2013Q1

REPORT INFORMATION
  Report Type: Spontaneous
  Country: US (occurrence: US)
  Receive Date: 20121119
  Receipt Date: 20130117
  Transmission Date: 20140127
  Serious: Yes (Hospitalization, Disabling)
  Sender: FDA-Public Use
  Company Number: US-ROCHE-1154825

PATIENT
  Sex: Male

DRUGS (2)
  1. CELLCEPT [Suspect]
     Indication: RENAL TRANSPLANT
     Route: 065
  2. PROGRAF [Suspect]
     Indication: PRODUCT USED FOR UNKNOWN INDICATION
     Route: 065

REACTIONS (3)
  - Hypertension [Unknown]
  - Renal failure [Unknown]
  - Transplant failure [Unknown]
